FAERS Safety Report 6060217-X (Version None)
Quarter: 2009Q1

REPORT INFORMATION
  Report Type: 
  Country: None (occurrence: None)
  Receive Date: 20090129
  Receipt Date: 20090121
  Transmission Date: 20090719
  Serious: Yes (Hospitalization)
  Sender: FDA-Public Use
  Company Number: DEP_00226_2009

PATIENT
  Age: 58 Year
  Sex: Male

DRUGS (7)
  1. CIPROFLOXACIN [Suspect]
     Indication: OFF LABEL USE
     Dosage: (200 MG BID INTRAVENOUS))
     Route: 042
  2. CIPROFLOXACIN [Suspect]
     Indication: PNEUMONIA
     Dosage: (200 MG BID INTRAVENOUS))
     Route: 042
  3. CIPROFLOXACIN [Suspect]
     Indication: URINARY TRACT INFECTION
     Dosage: (200 MG BID INTRAVENOUS))
     Route: 042
  4. CLOZAPINE [Suspect]
     Indication: DRUG USE FOR UNKNOWN INDICATION
     Dosage: (300 MG)
  5. VALPROIC ACID [Concomitant]
  6. HYDROCHLOROTHIAZIDE [Concomitant]
  7. CLONAZEPAM [Concomitant]

REACTIONS (4)
  - ALANINE AMINOTRANSFERASE INCREASED [None]
  - ASPARTATE AMINOTRANSFERASE INCREASED [None]
  - DRUG INTERACTION [None]
  - DRUG LEVEL INCREASED [None]
